FAERS Safety Report 13396738 (Version 2)
Quarter: 2017Q2

REPORT INFORMATION
  Report Type: Spontaneous
  Country: ZA (occurrence: ZA)
  Receive Date: 20170403
  Receipt Date: 20170406
  Transmission Date: 20170830
  Serious: Yes (Other)
  Sender: FDA-Public Use
  Company Number: ZA-ROCHE-1913685

PATIENT
  Sex: Male

DRUGS (1)
  1. BONDRONAT [Suspect]
     Active Substance: IBANDRONIC ACID
     Indication: METASTASES TO BONE
     Route: 048
     Dates: start: 20161206

REACTIONS (6)
  - Paraesthesia [Unknown]
  - Keratoacanthoma [Unknown]
  - Pain in extremity [Unknown]
  - Poor quality sleep [Unknown]
  - Muscle spasms [Unknown]
  - Quality of life decreased [Unknown]
